FAERS Safety Report 11098617 (Version 1)
Quarter: 2015Q2

REPORT INFORMATION
  Report Type: Spontaneous
  Country: US (occurrence: US)
  Receive Date: 20150507
  Receipt Date: 20150507
  Transmission Date: 20150821
  Serious: No
  Sender: FDA-Public Use
  Company Number: US-AMGEN-USASP2015029130

PATIENT
  Age: 61 Year
  Sex: Female

DRUGS (2)
  1. ARANESP [Suspect]
     Active Substance: DARBEPOETIN ALFA
     Indication: LUNG NEOPLASM
  2. ARANESP [Suspect]
     Active Substance: DARBEPOETIN ALFA
     Indication: TRACHEAL NEOPLASM

REACTIONS (1)
  - Off label use [Unknown]
